FAERS Safety Report 14871695 (Version 7)
Quarter: 2020Q3

REPORT INFORMATION
  Report Type: Report from Study
  Country: US (occurrence: US)
  Receive Date: 20180509
  Receipt Date: 20200814
  Transmission Date: 20201102
  Serious: Yes (Death, Hospitalization)
  Sender: FDA-Public Use
  Company Number: US-ACTELION-A-NJ2017-153916

PATIENT
  Age: 74 Year
  Sex: Female
  Weight: 84.81 kg

DRUGS (11)
  1. UPTRAVI [Suspect]
     Active Substance: SELEXIPAG
     Dosage: 400 MCG, BID
     Route: 048
     Dates: start: 20170426
  2. COMBIVENT [Suspect]
     Active Substance: ALBUTEROL SULFATE\IPRATROPIUM BROMIDE
     Indication: PRODUCT USED FOR UNKNOWN INDICATION
     Route: 065
  3. TORSEMIDE. [Concomitant]
     Active Substance: TORSEMIDE
  4. UPTRAVI [Suspect]
     Active Substance: SELEXIPAG
     Indication: PULMONARY ARTERIAL HYPERTENSION
     Dosage: 600 MCG, BID
     Route: 048
     Dates: start: 20180426
  5. SPIRONOLACTONE. [Concomitant]
     Active Substance: SPIRONOLACTONE
     Dosage: UNK
     Dates: start: 2017
  6. HYDROXYZINE [Concomitant]
     Active Substance: HYDROXYZINE HYDROCHLORIDE
     Dosage: UNK
     Dates: start: 2017
  7. LASIX [Suspect]
     Active Substance: FUROSEMIDE
     Indication: PRODUCT USED FOR UNKNOWN INDICATION
     Route: 065
  8. OXYGEN. [Concomitant]
     Active Substance: OXYGEN
     Dosage: UNK
     Dates: start: 2015
  9. BUMEX [Suspect]
     Active Substance: BUMETANIDE
     Indication: ABDOMINAL DISTENSION
     Dosage: UNK
     Route: 065
  10. ADCIRCA [Concomitant]
     Active Substance: TADALAFIL
     Dosage: UNK
     Dates: start: 2017
  11. PREDNISONE. [Concomitant]
     Active Substance: PREDNISONE
     Dosage: UNK
     Dates: start: 2017

REACTIONS (31)
  - Dehydration [Unknown]
  - Right ventricular dysfunction [Unknown]
  - Neck pain [Unknown]
  - Feeling abnormal [Recovering/Resolving]
  - Photopsia [Unknown]
  - Death [Fatal]
  - Raynaud^s phenomenon [Not Recovered/Not Resolved]
  - Headache [Recovering/Resolving]
  - Scleroderma [Unknown]
  - Blood pressure diastolic decreased [Recovering/Resolving]
  - Dizziness [Not Recovered/Not Resolved]
  - Abdominal distension [Unknown]
  - Blood pressure decreased [Unknown]
  - Presyncope [Unknown]
  - Epistaxis [Unknown]
  - Pruritus [Recovering/Resolving]
  - Muscle injury [Unknown]
  - Dry eye [Unknown]
  - Fluid overload [Unknown]
  - Skin exfoliation [Unknown]
  - Palpitations [Unknown]
  - Dyspnoea [Not Recovered/Not Resolved]
  - CREST syndrome [Unknown]
  - Antinuclear antibody [Not Recovered/Not Resolved]
  - Oesophageal disorder [Not Recovered/Not Resolved]
  - Arthralgia [Unknown]
  - Glaucoma [Unknown]
  - Retinal operation [Unknown]
  - Rash [Unknown]
  - Fatigue [Unknown]
  - Vision blurred [Unknown]

NARRATIVE: CASE EVENT DATE: 20180421
